FAERS Safety Report 19225889 (Version 1)
Quarter: 2021Q2

REPORT INFORMATION
  Report Type: Spontaneous
  Country: US (occurrence: US)
  Receive Date: 20210505
  Receipt Date: 20210505
  Transmission Date: 20210717
  Serious: No
  Sender: FDA-Public Use
  Company Number: US-ROCHE-2650900

PATIENT
  Age: 49 Year
  Sex: Female
  Weight: 76.27 kg

DRUGS (2)
  1. AVASTIN [Suspect]
     Active Substance: BEVACIZUMAB
     Indication: ANAL CANCER METASTATIC
     Route: 065
     Dates: start: 20200610
  2. IRINOTECAN [Concomitant]
     Active Substance: IRINOTECAN

REACTIONS (3)
  - Off label use [Unknown]
  - Intentional product use issue [Unknown]
  - No adverse event [Unknown]

NARRATIVE: CASE EVENT DATE: 20200610
